FAERS Safety Report 5585423-X (Version None)
Quarter: 2008Q1

REPORT INFORMATION
  Report Type: 
  Country: None (occurrence: None)
  Receive Date: 20080109
  Receipt Date: 20080103
  Transmission Date: 20080703
  Serious: Yes (Life-Threatening)
  Sender: FDA-Public Use
  Company Number: CA-BAYER-CA-2007-032516

PATIENT
  Sex: Female

DRUGS (1)
  1. MIRENA [Suspect]
     Indication: DRUG USE FOR UNKNOWN INDICATION
     Route: 015
     Dates: start: 20060201

REACTIONS (1)
  - MYOCARDIAL INFARCTION [None]
